FAERS Safety Report 21498763 (Version 1)
Quarter: 2022Q4

REPORT INFORMATION
  Report Type: Spontaneous
  Country: JP (occurrence: JP)
  Receive Date: 20221024
  Receipt Date: 20221024
  Transmission Date: 20230113
  Serious: Yes (Other)
  Sender: FDA-Public Use
  Company Number: JP-AMNEAL PHARMACEUTICALS-2022-AMRX-02979

PATIENT
  Age: 24 Week
  Sex: Male
  Weight: .35 kg

DRUGS (2)
  1. LINEZOLID [Suspect]
     Active Substance: LINEZOLID
     Indication: Staphylococcal infection
     Dosage: 10 MILLIGRAM/KILOGRAM, EVERY 8HR
     Route: 065
  2. LINEZOLID [Suspect]
     Active Substance: LINEZOLID
     Indication: Device related infection

REACTIONS (2)
  - Hyperglycaemia [Recovered/Resolved]
  - Lactic acidosis [Recovered/Resolved]
